FAERS Safety Report 5049826-4 (Version None)
Quarter: 2006Q3

REPORT INFORMATION
  Report Type: 
  Country: None (occurrence: None)
  Receive Date: 20060706
  Receipt Date: 20060629
  Transmission Date: 20061208
  Serious: Yes (Other)
  Sender: FDA-Public Use
  Company Number: USA-2006-0024339

PATIENT
  Age: 31 Year
  Sex: Male

DRUGS (3)
  1. OXYCODONE HCL [Suspect]
     Indication: BACK PAIN
     Dosage: SEE IMAGE
     Dates: start: 20060101
  2. OXYCODONE HCL [Suspect]
     Indication: BACK PAIN
     Dosage: SEE IMAGE
     Dates: start: 20060125
  3. NORCO [Concomitant]

REACTIONS (5)
  - DRUG ABUSER [None]
  - DYSPNOEA [None]
  - INADEQUATE ANALGESIA [None]
  - PNEUMONIA [None]
  - SOMNOLENCE [None]
